FAERS Safety Report 20966058 (Version 4)
Quarter: 2022Q4

REPORT INFORMATION
  Report Type: Report from Study
  Country: JP (occurrence: JP)
  Receive Date: 20220616
  Receipt Date: 20221219
  Transmission Date: 20230113
  Serious: Yes (Hospitalization, Other)
  Sender: FDA-Public Use
  Company Number: JP-ONO-2022JP016531

PATIENT
  Age: 83 Year
  Sex: Male
  Weight: 50.3 kg

DRUGS (12)
  1. ETELCALCETIDE [Suspect]
     Active Substance: ETELCALCETIDE
     Indication: Hyperparathyroidism secondary
     Dosage: 5 MG, Q56H
     Route: 065
     Dates: start: 20190128, end: 20190221
  2. ETELCALCETIDE [Suspect]
     Active Substance: ETELCALCETIDE
     Dosage: 10 MG, Q56H
     Route: 065
     Dates: start: 20190222, end: 20190703
  3. ETELCALCETIDE [Suspect]
     Active Substance: ETELCALCETIDE
     Dosage: 5 MG, Q56H
     Route: 065
     Dates: start: 20190705, end: 20211203
  4. ETELCALCETIDE [Suspect]
     Active Substance: ETELCALCETIDE
     Dosage: 2.5 MG, Q56H
     Route: 065
     Dates: start: 20211206
  5. DARBEPOETIN ALFA [Concomitant]
     Active Substance: DARBEPOETIN ALFA
     Dosage: 10 MICROGRAM, QWK
     Route: 065
     Dates: end: 20190724
  6. ALFAROL [Concomitant]
     Active Substance: ALFACALCIDOL
     Dosage: 0.5 MUG, Q56H
     Route: 048
     Dates: end: 20190326
  7. ALFAROL [Concomitant]
     Active Substance: ALFACALCIDOL
     Dosage: 0.25 MUG, EVERYDAY
     Route: 048
     Dates: start: 20190327
  8. BIXALOMER [Concomitant]
     Active Substance: BIXALOMER
     Dosage: 1500 MG, EVERYDAY
     Route: 048
  9. DARBEPOETIN ALFA [Concomitant]
     Active Substance: DARBEPOETIN ALFA
     Dosage: 15 MICROGRAM, QWK
     Route: 065
     Dates: start: 20190731, end: 20200617
  10. DARBEPOETIN ALFA [Concomitant]
     Active Substance: DARBEPOETIN ALFA
     Dosage: 30 MICROGRAM, QWK
     Route: 065
     Dates: start: 20200624, end: 20210210
  11. DARBEPOETIN ALFA [Concomitant]
     Active Substance: DARBEPOETIN ALFA
     Dosage: 20 MICROGRAM, QWK
     Route: 065
     Dates: start: 20210217
  12. CALCIUM CARBONATE [Concomitant]
     Active Substance: CALCIUM CARBONATE
     Dosage: 1000 MG, EVERYDAY
     Route: 065
     Dates: start: 20190429

REACTIONS (2)
  - Aortic valve stenosis [Recovered/Resolved]
  - Bacteraemia [Recovered/Resolved]

NARRATIVE: CASE EVENT DATE: 20211016
